FAERS Safety Report 8548740-7 (Version None)
Quarter: 2012Q3

REPORT INFORMATION
  Report Type: 
  Country: None (occurrence: None)
  Receive Date: 20120730
  Receipt Date: 20120724
  Transmission Date: 20120928
  Serious: Yes (Other)
  Sender: FDA-Public Use
  Company Number: PHHY2012BR064767

PATIENT
  Age: 60 Year
  Sex: Female
  Weight: 62 kg

DRUGS (3)
  1. IMATINIB MESYLATE [Suspect]
     Indication: CHRONIC MYELOID LEUKAEMIA
     Dosage: 1 DF DAILY
  2. ENALAPRIL (PRESSEL) [Concomitant]
     Dosage: 2 DF DAILY
  3. METFORMIN HYDROCHLORIDE [Concomitant]
     Indication: BLOOD GLUCOSE FLUCTUATION
     Dosage: 850 MG, UNK

REACTIONS (7)
  - ABDOMINAL PAIN UPPER [None]
  - BLOOD PRESSURE FLUCTUATION [None]
  - VOMITING [None]
  - CYST [None]
  - VISUAL IMPAIRMENT [None]
  - PRURITUS GENERALISED [None]
  - GASTRITIS [None]
